FAERS Safety Report 9613364 (Version 3)
Quarter: 2014Q2

REPORT INFORMATION
  Report Type: Report from Study
  Country: AR (occurrence: AR)
  Receive Date: 20131010
  Receipt Date: 20140603
  Transmission Date: 20141212
  Serious: Yes (Hospitalization)
  Sender: FDA-Public Use
  Company Number: AR-ABBVIE-13P-007-1155878-00

PATIENT
  Age: 60 Year
  Sex: Male

DRUGS (2)
  1. HUMIRA [Suspect]
     Indication: COLITIS ULCERATIVE
     Route: 058
     Dates: start: 20130705, end: 20130920
  2. HUMIRA [Suspect]
     Dates: end: 201310

REACTIONS (4)
  - Gastrointestinal oedema [Recovering/Resolving]
  - Gastrointestinal bacterial infection [Recovered/Resolved]
  - Nosocomial infection [Recovering/Resolving]
  - Colon operation [Recovering/Resolving]
